FAERS Safety Report 18600564 (Version 1)
Quarter: 2020Q4

REPORT INFORMATION
  Report Type: Spontaneous
  Country: IN (occurrence: IN)
  Receive Date: 20201210
  Receipt Date: 20201210
  Transmission Date: 20210114
  Serious: Yes (Other)
  Sender: FDA-Public Use
  Company Number: IN-PFIZER INC-2020482052

PATIENT
  Age: 65 Year
  Sex: Female

DRUGS (5)
  1. PALBACE [Suspect]
     Active Substance: PALBOCICLIB
     Indication: BREAST CANCER METASTATIC
     Dosage: 125 MG, 1X/DAY(1-0-0) X [21/28DAYS]
     Route: 048
     Dates: start: 20190829
  2. FEMARA [Concomitant]
     Active Substance: LETROZOLE
     Dosage: 2.5MG 1-0-0 X 28DAYS
  3. PAN D [DOMPERIDONE;PANTOPRAZOLE SODIUM SESQUIHYDRATE] [Concomitant]
     Dosage: (1-0-0) X 28DAYS
  4. ZOLEDRONATE [Concomitant]
     Active Substance: ZOLEDRONIC ACID
     Indication: METASTASES TO BONE
     Dosage: 4MG IN 100CL ILLEGIBLE IV OVER 1/2 HR
     Route: 042
     Dates: start: 20200906
  5. SHELCAL [CALCIUM;COLECALCIFEROL] [Concomitant]
     Dosage: 1-0-1 X 28DAYS

REACTIONS (2)
  - Type 2 diabetes mellitus [Unknown]
  - Pain [Unknown]
